FAERS Safety Report 19420312 (Version 3)
Quarter: 2021Q3

REPORT INFORMATION
  Report Type: Spontaneous
  Country: JP (occurrence: JP)
  Receive Date: 20210615
  Receipt Date: 20210714
  Transmission Date: 20211014
  Serious: Yes (Other)
  Sender: FDA-Public Use
  Company Number: JP-SA-2021SA191933

PATIENT
  Age: 3 Year
  Sex: Female

DRUGS (6)
  1. METHOTREXATE. [Concomitant]
     Active Substance: METHOTREXATE
     Indication: METASTATIC NEOPLASM
  2. DOCETAXEL. [Suspect]
     Active Substance: DOCETAXEL
     Indication: ATYPICAL TERATOID/RHABDOID TUMOUR OF CNS
  3. METHOTREXATE. [Concomitant]
     Active Substance: METHOTREXATE
     Indication: ATYPICAL TERATOID/RHABDOID TUMOUR OF CNS
     Dosage: TOTAL COURSE RECEIVED 4 COURSES
     Route: 037
  4. DOCETAXEL. [Suspect]
     Active Substance: DOCETAXEL
     Indication: METASTATIC NEOPLASM
     Dosage: ON DAY 8 (2 COURSES)
     Route: 041
  5. GEMCITABINE HYDROCHLORIDE. [Suspect]
     Active Substance: GEMCITABINE HYDROCHLORIDE
     Indication: ATYPICAL TERATOID/RHABDOID TUMOUR OF CNS
  6. GEMCITABINE HYDROCHLORIDE. [Suspect]
     Active Substance: GEMCITABINE HYDROCHLORIDE
     Indication: METASTATIC NEOPLASM
     Dosage: 900MG/M2 ON DAY 1 AND DAY 8 (2 COURSES)
     Route: 065

REACTIONS (3)
  - Haematotoxicity [Unknown]
  - Acute respiratory distress syndrome [Unknown]
  - Pneumonia viral [Unknown]
